FAERS Safety Report 14838744 (Version 1)
Quarter: 2018Q2

REPORT INFORMATION
  Report Type: Spontaneous
  Country: CH (occurrence: CH)
  Receive Date: 20180502
  Receipt Date: 20180502
  Transmission Date: 20180711
  Serious: Yes (Hospitalization)
  Sender: FDA-Public Use
  Company Number: CH-JNJFOC-20180436097

PATIENT
  Age: 67 Year
  Sex: Male

DRUGS (11)
  1. TOREM [Concomitant]
     Active Substance: TORSEMIDE
     Route: 065
  2. ASPIRIN CARDIO [Interacting]
     Active Substance: ASPIRIN
     Indication: ARTERIAL BYPASS OPERATION
     Route: 048
     Dates: end: 20180405
  3. ASPIRIN CARDIO [Interacting]
     Active Substance: ASPIRIN
     Indication: ARTERIAL BYPASS OPERATION
     Route: 048
     Dates: start: 20180407
  4. ATORVASTATIN [Concomitant]
     Active Substance: ATORVASTATIN
     Route: 065
  5. PANTOZOL [Concomitant]
     Active Substance: PANTOPRAZOLE SODIUM
     Route: 065
  6. SPIRONOLACTON [Concomitant]
     Active Substance: SPIRONOLACTONE
     Route: 065
  7. XARELTO [Suspect]
     Active Substance: RIVAROXABAN
     Indication: ATRIAL FIBRILLATION
     Route: 048
     Dates: end: 20180405
  8. CORDARON [Interacting]
     Active Substance: AMIODARONE HYDROCHLORIDE
     Indication: ATRIAL FIBRILLATION
     Route: 048
  9. CONCOR [Concomitant]
     Active Substance: BISOPROLOL FUMARATE
     Route: 065
  10. TRIATEC (RAMIPRIL) [Concomitant]
     Active Substance: RAMIPRIL
     Route: 065
  11. XARELTO [Suspect]
     Active Substance: RIVAROXABAN
     Indication: ATRIAL FIBRILLATION
     Route: 048
     Dates: start: 20180410

REACTIONS (3)
  - Hypochromic anaemia [Recovering/Resolving]
  - Labelled drug-drug interaction medication error [Recovered/Resolved with Sequelae]
  - Drug interaction [Recovered/Resolved with Sequelae]

NARRATIVE: CASE EVENT DATE: 20180405
